FAERS Safety Report 4705982-6 (Version None)
Quarter: 2005Q2

REPORT INFORMATION
  Report Type: 
  Country: None (occurrence: None)
  Receive Date: 20050629
  Receipt Date: 20050622
  Transmission Date: 20051028
  Serious: Yes (Hospitalization)
  Sender: FDA-Public Use
  Company Number: 200505260

PATIENT
  Age: 43 Year
  Sex: Female
  Weight: 36 kg

DRUGS (8)
  1. BOTOX [Suspect]
     Indication: MUSCLE SPASMS
     Dosage: 500 UNITS ONCE IM
     Route: 030
     Dates: start: 20050614
  2. BOTOX [Suspect]
     Indication: TREMOR
     Dosage: 500 UNITS ONCE IM
     Route: 030
     Dates: start: 20050614
  3. SYNTHROID [Concomitant]
  4. SINGULAIR [Concomitant]
  5. NASACORT [Concomitant]
  6. MAGNESIUM OXIDE [Concomitant]
  7. ACIDOPHILUS [Concomitant]
  8. CRANBERRY PILLS [Concomitant]

REACTIONS (7)
  - ANOREXIA [None]
  - CHEST PAIN [None]
  - DYSPHAGIA [None]
  - DYSPNOEA [None]
  - GASTROOESOPHAGEAL REFLUX DISEASE [None]
  - NAUSEA [None]
  - RETCHING [None]
